FAERS Safety Report 24221000 (Version 1)
Quarter: 2024Q3

REPORT INFORMATION
  Report Type: Spontaneous
  Country: US (occurrence: US)
  Receive Date: 20240819
  Receipt Date: 20240819
  Transmission Date: 20241017
  Serious: No
  Sender: ENDO
  Company Number: ENDB23-04581

PATIENT
  Sex: Female

DRUGS (1)
  1. QWO [Suspect]
     Active Substance: COLLAGENASE CLOSTRIDIUM HISTOLYTICUM-AAES
     Indication: Product used for unknown indication
     Dosage: UNK UNKNOWN, SINGLE
     Route: 065
     Dates: start: 20211118, end: 20211118

REACTIONS (4)
  - Skin hyperpigmentation [Unknown]
  - Nodule [Not Recovered/Not Resolved]
  - Contusion [Unknown]
  - Off label use [Recovered/Resolved]

NARRATIVE: CASE EVENT DATE: 20211101
